FAERS Safety Report 22257331 (Version 2)
Quarter: 2023Q2

REPORT INFORMATION
  Report Type: Spontaneous
  Country: US (occurrence: US)
  Receive Date: 20230427
  Receipt Date: 20230529
  Transmission Date: 20230721
  Serious: No
  Sender: FDA-Public Use
  Company Number: US-AMGEN-USASP2023067151

PATIENT
  Sex: Female

DRUGS (4)
  1. PROLIA [Suspect]
     Active Substance: DENOSUMAB
     Indication: Osteoporosis postmenopausal
     Dosage: 60 MILLIGRAM, Q6MO
     Route: 065
     Dates: start: 2012
  2. VITAMIN D2 [Concomitant]
     Active Substance: ERGOCALCIFEROL
     Indication: Bone disorder
     Dosage: 1.25 MILLIGRAM (TAKE 2 BY MOUTH TWICE WEEKLY) IN AROUND 2012
  3. VITAMIN D2 [Concomitant]
     Active Substance: ERGOCALCIFEROL
     Indication: Immune system disorder
  4. BONE UP [Concomitant]
     Dosage: UNK

REACTIONS (12)
  - Dry eye [Not Recovered/Not Resolved]
  - Dry mouth [Not Recovered/Not Resolved]
  - Dry skin [Not Recovered/Not Resolved]
  - Pain of skin [Unknown]
  - Oral pain [Unknown]
  - Eye pain [Unknown]
  - Skin exfoliation [Unknown]
  - Type V hyperlipidaemia [Unknown]
  - Tooth extraction [Unknown]
  - White blood cell count decreased [Unknown]
  - Dental implantation [Unknown]
  - Fall [Unknown]
